FAERS Safety Report 22006214 (Version 1)
Quarter: 2023Q1

REPORT INFORMATION
  Report Type: Spontaneous
  Country: US (occurrence: None)
  Receive Date: 20230216
  Receipt Date: 20230216
  Transmission Date: 20230417
  Serious: Yes (Death)
  Sender: FDA-Public Use
  Company Number: None

PATIENT
  Sex: Female

DRUGS (2)
  1. CYCLOPHOSPHAMIDE [Suspect]
     Active Substance: CYCLOPHOSPHAMIDE
     Indication: Plasma cell myeloma
     Dosage: 50MG  ORAL?FREQUENCY FOR BOTH MEDICATIONS: DAYS 1, 8, AND 15 EVERY 28 DAYS;
     Route: 048
     Dates: start: 202301
  2. NINLARO [Suspect]
     Active Substance: IXAZOMIB CITRATE
     Indication: Plasma cell myeloma
     Dosage: 4MG ORAL??FREQUENCY FOR BOTH MEDICATIONS: DAYS 1, 8, AND 15 EVERY 28 DAYS;
     Route: 048
     Dates: start: 202301

REACTIONS (1)
  - Plasma cell myeloma [None]
